FAERS Safety Report 19934857 (Version 4)
Quarter: 2022Q1

REPORT INFORMATION
  Report Type: Report from Study
  Country: CN (occurrence: CN)
  Receive Date: 20211008
  Receipt Date: 20220106
  Transmission Date: 20220423
  Serious: Yes (Hospitalization, Other)
  Sender: FDA-Public Use
  Company Number: CN-GLAXOSMITHKLINE-CN2021GSK208521

PATIENT
  Age: 37 Year
  Sex: Male
  Weight: 51 kg

DRUGS (9)
  1. NIRAPARIB [Suspect]
     Active Substance: NIRAPARIB
     Indication: Gastric cancer
     Dosage: 200 MG, QD
     Route: 048
     Dates: start: 20210806, end: 20210928
  2. NIRAPARIB [Suspect]
     Active Substance: NIRAPARIB
     Dosage: UNK
     Route: 048
     Dates: end: 20210929
  3. NIRAPARIB [Suspect]
     Active Substance: NIRAPARIB
     Dosage: 200 MG, QD
     Route: 048
     Dates: start: 20211010, end: 20211026
  4. TEBOTELIMAB [Suspect]
     Active Substance: TEBOTELIMAB
     Indication: Gastric cancer
     Dosage: 600 MG, CYC
     Route: 042
     Dates: start: 20210806, end: 20210806
  5. TEBOTELIMAB [Suspect]
     Active Substance: TEBOTELIMAB
     Dosage: 600 MG, CYC
     Route: 042
     Dates: start: 20210917, end: 20210917
  6. TEBOTELIMAB [Suspect]
     Active Substance: TEBOTELIMAB
     Dosage: UNK
     Route: 042
     Dates: start: 20210929, end: 20210929
  7. IBUPROFEN SUSTAINED RELEASE CAPSULE [Concomitant]
     Indication: Prophylaxis
     Dosage: 0.3 G, QD
     Route: 048
     Dates: start: 20210917, end: 20210917
  8. DIPHENHYDRAMINE [Concomitant]
     Active Substance: DIPHENHYDRAMINE
     Indication: Prophylaxis
     Dosage: 40 MG, QD
     Route: 030
     Dates: start: 20210917, end: 20210917
  9. RABEPRAZOLE SODIUM [Concomitant]
     Active Substance: RABEPRAZOLE SODIUM
     Indication: Prophylaxis
     Dosage: 20 MG, QD
     Route: 041
     Dates: start: 20210917, end: 20210917

REACTIONS (1)
  - Immune-mediated hepatitis [Recovered/Resolved]

NARRATIVE: CASE EVENT DATE: 20210929
